FAERS Safety Report 13568611 (Version 1)
Quarter: 2017Q2

REPORT INFORMATION
  Report Type: Spontaneous
  Country: US (occurrence: US)
  Receive Date: 20170522
  Receipt Date: 20170522
  Transmission Date: 20170830
  Serious: No
  Sender: FDA-Public Use
  Company Number: None

PATIENT
  Age: 52 Year
  Sex: Female
  Weight: 72.45 kg

DRUGS (3)
  1. GINGER. [Concomitant]
     Active Substance: GINGER
  2. CHANTIX [Suspect]
     Active Substance: VARENICLINE TARTRATE
     Indication: SMOKING CESSATION THERAPY
     Dosage: ?          QUANTITY:1 TABLET(S);?
     Route: 048
     Dates: start: 20170507
  3. EMERGEM=C [Concomitant]

REACTIONS (8)
  - Irritability [None]
  - Abdominal distension [None]
  - Abdominal pain [None]
  - Flank pain [None]
  - Fatigue [None]
  - Constipation [None]
  - Nausea [None]
  - Heart rate increased [None]

NARRATIVE: CASE EVENT DATE: 20170517
